FAERS Safety Report 7966961-9 (Version None)
Quarter: 2011Q4

REPORT INFORMATION
  Report Type: 
  Country: None (occurrence: None)
  Receive Date: 20111209
  Receipt Date: 20111128
  Transmission Date: 20120403
  Serious: Yes (Other)
  Sender: FDA-Public Use
  Company Number: GB-RANBAXY-2011R1-50748

PATIENT
  Age: 7 Year

DRUGS (1)
  1. AMOXICILLIN [Suspect]
     Indication: TOOTH ABSCESS
     Dosage: 250 MG, TID
     Route: 048
     Dates: start: 20111110

REACTIONS (2)
  - HYPERSENSITIVITY [None]
  - SWELLING FACE [None]
